FAERS Safety Report 7940695-9 (Version None)
Quarter: 2011Q4

REPORT INFORMATION
  Report Type: 
  Country: None (occurrence: None)
  Receive Date: 20111128
  Receipt Date: 20111117
  Transmission Date: 20120403
  Serious: Yes (Hospitalization, Other)
  Sender: FDA-Public Use
  Company Number: US-JNJFOC-20060600954

PATIENT
  Sex: Female
  Weight: 58.97 kg

DRUGS (8)
  1. DURAGESIC-100 [Suspect]
     Route: 062
     Dates: start: 20000101
  2. IBUPROFEN [Concomitant]
     Indication: PAIN
     Route: 048
  3. DURAGESIC-100 [Suspect]
     Route: 062
  4. DURAGESIC-100 [Suspect]
     Route: 062
  5. DURAGESIC-100 [Suspect]
     Indication: PAIN
     Route: 062
  6. BACLOFEN [Concomitant]
     Indication: MUSCLE SPASMS
     Route: 048
     Dates: start: 19990101
  7. DURAGESIC-100 [Suspect]
     Dosage: NDC #5045809405
     Route: 062
  8. PERCOCET [Concomitant]
     Indication: PAIN
     Route: 048
     Dates: start: 19990101

REACTIONS (8)
  - ARTHRALGIA [None]
  - ARTHROPATHY [None]
  - PRODUCT ADHESION ISSUE [None]
  - BODY HEIGHT DECREASED [None]
  - IMMUNE SYSTEM DISORDER [None]
  - PAIN [None]
  - FEELING ABNORMAL [None]
  - BONE LOSS [None]
